FAERS Safety Report 14751262 (Version 1)
Quarter: 2018Q2

REPORT INFORMATION
  Report Type: Spontaneous
  Country: ZA (occurrence: ZA)
  Receive Date: 20180412
  Receipt Date: 20180412
  Transmission Date: 20180711
  Serious: Yes (Hospitalization)
  Sender: FDA-Public Use
  Company Number: ZA-PFIZER INC-2018149117

PATIENT
  Age: 67 Year
  Sex: Male

DRUGS (10)
  1. AMILORETIC /00206601/ [Suspect]
     Active Substance: AMILORIDE HYDROCHLORIDE\HYDROCHLOROTHIAZIDE
     Dosage: 5/50 MG, UNK
  2. LANTUS [Suspect]
     Active Substance: INSULIN GLARGINE
     Dosage: 100 IU, UNK
  3. DEPRAMIL [Suspect]
     Active Substance: CITALOPRAM HYDROBROMIDE
     Dosage: 20 MG, UNK
  4. ASPAVOR [Suspect]
     Active Substance: ATORVASTATIN
     Dosage: 20 MG, UNK
  5. AMLOC /00550802/ [Suspect]
     Active Substance: RANITIDINE HYDROCHLORIDE
     Dosage: 10 MG, UNK
  6. ONGLYZA [Suspect]
     Active Substance: SAXAGLIPTIN HYDROCHLORIDE
     Dosage: 5 MG, UNK
  7. PLENISH-K [Suspect]
     Active Substance: POTASSIUM CHLORIDE
     Dosage: 600 MG, UNK
  8. FUROSEMIDE. [Suspect]
     Active Substance: FUROSEMIDE
     Dosage: 40 MG, UNK
  9. METFORMIN [Suspect]
     Active Substance: METFORMIN HYDROCHLORIDE
     Dosage: 1000 MG, UNK
  10. ZOMEVEK [Suspect]
     Active Substance: VALSARTAN
     Dosage: 160 MG, UNK

REACTIONS (1)
  - Pneumonia [Unknown]

NARRATIVE: CASE EVENT DATE: 201803
